FAERS Safety Report 9404320 (Version 1)
Quarter: 2013Q3

REPORT INFORMATION
  Report Type: Report from Study
  Country: GB (occurrence: GB)
  Receive Date: 20130717
  Receipt Date: 20130717
  Transmission Date: 20140515
  Serious: Yes (Other)
  Sender: FDA-Public Use
  Company Number: GB-ROCHE-1249465

PATIENT
  Age: 56 Year
  Sex: Female
  Weight: 87.4 kg

DRUGS (1)
  1. AVASTIN [Suspect]
     Indication: OVARIAN CANCER
     Route: 042
     Dates: start: 20121019

REACTIONS (2)
  - Hypothyroidism [Not Recovered/Not Resolved]
  - Otitis externa [Not Recovered/Not Resolved]
